FAERS Safety Report 13526330 (Version 1)
Quarter: 2017Q2

REPORT INFORMATION
  Report Type: Spontaneous
  Country: FR (occurrence: FR)
  Receive Date: 20170509
  Receipt Date: 20170509
  Transmission Date: 20170830
  Serious: Yes (Other)
  Sender: FDA-Public Use
  Company Number: FR-B.I. PHARMACEUTICALS,INC./RIDGEFIELD-2017-BI-025086

PATIENT
  Age: 3 Day
  Sex: Female
  Weight: .87 kg

DRUGS (4)
  1. EPIVIR [Suspect]
     Active Substance: LAMIVUDINE
     Indication: PROPHYLAXIS AGAINST HIV INFECTION
     Route: 050
     Dates: start: 20170417
  2. RETROVIR [Suspect]
     Active Substance: ZIDOVUDINE
     Indication: PROPHYLAXIS AGAINST HIV INFECTION
     Route: 042
     Dates: start: 20170417
  3. VIRAMUNE [Suspect]
     Active Substance: NEVIRAPINE
     Indication: PROPHYLAXIS AGAINST HIV INFECTION
     Route: 050
     Dates: start: 20170417
  4. RETROVIR [Suspect]
     Active Substance: ZIDOVUDINE
     Route: 042

REACTIONS (1)
  - Metabolic acidosis [Recovered/Resolved]

NARRATIVE: CASE EVENT DATE: 20170420
